FAERS Safety Report 5735189-5 (Version None)
Quarter: 2008Q2

REPORT INFORMATION
  Report Type: 
  Country: None (occurrence: None)
  Receive Date: 20080512
  Receipt Date: 20080506
  Transmission Date: 20081010
  Serious: Yes (Other)
  Sender: FDA-Public Use
  Company Number: GB-ASTRAZENECA-2008AC01196

PATIENT
  Age: 8 Year
  Sex: Female

DRUGS (3)
  1. BUDESONIDE [Suspect]
     Indication: ASTHMA
     Route: 055
  2. BUDESONIDE [Suspect]
     Route: 055
  3. FLUTICASONE PROPRIONATE [Suspect]

REACTIONS (3)
  - ADRENAL INSUFFICIENCY [None]
  - GROWTH RETARDATION [None]
  - OVERDOSE [None]
